FAERS Safety Report 13484339 (Version 1)
Quarter: 2017Q2

REPORT INFORMATION
  Report Type: Spontaneous
  Country: DE (occurrence: DE)
  Receive Date: 20170425
  Receipt Date: 20170425
  Transmission Date: 20170830
  Serious: No
  Sender: FDA-Public Use
  Company Number: DE-LUPIN PHARMACEUTICALS INC.-2016-03289

PATIENT
  Age: 55 Year
  Sex: Female

DRUGS (1)
  1. MINOCYCLINE [Suspect]
     Active Substance: MINOCYCLINE\MINOCYCLINE HYDROCHLORIDE
     Indication: ACNE
     Dosage: 200 MG
     Route: 048

REACTIONS (4)
  - Pigmentation disorder [Recovered/Resolved]
  - Scleral pigmentation [Recovered/Resolved]
  - Nail pigmentation [Recovered/Resolved]
  - Tooth discolouration [Recovered/Resolved]
